FAERS Safety Report 5183260-1 (Version None)
Quarter: 2006Q4

REPORT INFORMATION
  Report Type: 
  Country: None (occurrence: None)
  Receive Date: 20061220
  Receipt Date: 20060104
  Transmission Date: 20070319
  Serious: Yes (Other)
  Sender: FDA-Public Use
  Company Number: US-GLAXOSMITHKLINE-A0587718A

PATIENT
  Age: 42 Year
  Sex: Male

DRUGS (2)
  1. NICODERM CQ [Suspect]
     Dosage: 7MG UNKNOWN
     Dates: start: 20050301, end: 20050101
  2. COMMIT [Suspect]
     Dosage: 2MG SINGLE DOSE
     Dates: start: 20051229, end: 20051229

REACTIONS (4)
  - APPLICATION SITE PRURITUS [None]
  - DRUG ABUSER [None]
  - NAUSEA [None]
  - VOMITING [None]
